FAERS Safety Report 9122177 (Version 2)
Quarter: 2013Q2

REPORT INFORMATION
  Report Type: Spontaneous
  Country: US (occurrence: None)
  Receive Date: 20130125
  Receipt Date: 20130409
  Transmission Date: 20140414
  Serious: Yes (Other)
  Sender: FDA-Public Use
  Company Number: 2012US-004486

PATIENT
  Age: 54 Year
  Sex: Male
  Weight: 102 kg

DRUGS (15)
  1. OMONTYS [Suspect]
     Indication: NEPHROGENIC ANAEMIA
     Route: 042
     Dates: start: 20121115, end: 20121115
  2. RENVELA (SEVELAMER CARBONATE) [Concomitant]
  3. LISINOPRIL (LISINOPRIL) [Concomitant]
  4. METOPROLOL (METOPROLOL) [Concomitant]
  5. LOSARTAN [Concomitant]
  6. CARVEDILOL [Concomitant]
  7. ASPIRIN (ACETYLSALICYLIC ACID) [Concomitant]
  8. LANTUS (INSULIN GLARGINE) [Concomitant]
  9. NOVOLOG (INSULIN ASPART) (NO PREF. NAME) [Concomitant]
  10. DULCOLAX (BISACODYL) [Concomitant]
  11. AMLODIPINE (AMLODIPINE) [Concomitant]
  12. DEXILANT (DEXLANSOPRAZOLE) [Concomitant]
  13. ZEMPLAR (PARICALCITOL) [Concomitant]
  14. NEPHROVITE (ASCORBIC ACID, BIOTIN, CALCIUM PANTOTHENATE, CYANOCOBALAMIN, FOLIC ACID, NICOTINAMIDE, PYRIDOXINE HYDROCHLORIDE, RIBOFLAVIN, THIAMINE HYDROCHLORIDE) [Concomitant]
  15. TUMS (CALCIUM CARBONATE) [Concomitant]

REACTIONS (6)
  - Hypotension [None]
  - Loss of consciousness [None]
  - Urinary incontinence [None]
  - Feeling abnormal [None]
  - Amnesia [None]
  - Hyperhidrosis [None]
